FAERS Safety Report 15668112 (Version 1)
Quarter: 2018Q4

REPORT INFORMATION
  Report Type: Report from Study
  Country: None (occurrence: DE)
  Receive Date: 20181129
  Receipt Date: 20181129
  Transmission Date: 20190205
  Serious: Yes (Life-Threatening, Hospitalization)
  Sender: FDA-Public Use
  Company Number: DE-ABBVIE-18K-062-2569813-00

PATIENT
  Age: 56 Year
  Sex: Female

DRUGS (6)
  1. BUDENOFALK [Concomitant]
     Active Substance: BUDESONIDE
     Indication: COLITIS ULCERATIVE
     Dates: start: 20170517, end: 201708
  2. ENTYVIO [Concomitant]
     Active Substance: VEDOLIZUMAB
     Indication: PRODUCT USED FOR UNKNOWN INDICATION
     Dates: start: 20171113
  3. HUMIRA [Suspect]
     Active Substance: ADALIMUMAB
     Indication: COLITIS ULCERATIVE
     Route: 058
     Dates: start: 20160427, end: 201708
  4. PREDNISOLONE. [Concomitant]
     Active Substance: PREDNISOLONE
  5. MEZAVANT [Concomitant]
     Active Substance: MESALAMINE
     Indication: COLITIS ULCERATIVE
     Dates: start: 20170208, end: 201704
  6. PREDNISOLONE. [Concomitant]
     Active Substance: PREDNISOLONE
     Indication: COLITIS
     Dates: start: 2008, end: 2013

REACTIONS (18)
  - Pancreatic cyst [Unknown]
  - Cholelithiasis [Unknown]
  - Colitis erosive [Unknown]
  - Salmonellosis [Not Recovered/Not Resolved]
  - Chronic gastritis [Unknown]
  - Kyphosis [Unknown]
  - Colitis [Not Recovered/Not Resolved]
  - Aortic dilatation [Unknown]
  - Post procedural fever [Unknown]
  - Aortic aneurysm rupture [Recovered/Resolved]
  - Gastritis erosive [Unknown]
  - Aortic arteriosclerosis [Unknown]
  - Gastroenteritis salmonella [Unknown]
  - Gastrointestinal oedema [Unknown]
  - Hepatic steatosis [Unknown]
  - Osteoarthritis [Unknown]
  - Gastric mucosa erythema [Unknown]
  - Flatulence [Unknown]

NARRATIVE: CASE EVENT DATE: 20180925
